FAERS Safety Report 13300438 (Version 1)
Quarter: 2017Q1

REPORT INFORMATION
  Report Type: Spontaneous
  Country: US (occurrence: US)
  Receive Date: 20170307
  Receipt Date: 20170307
  Transmission Date: 20170428
  Serious: No
  Sender: FDA-Public Use
  Company Number: US-009507513-1702USA011060

PATIENT
  Age: 37 Year
  Sex: Female
  Weight: 52.15 kg

DRUGS (2)
  1. NUVARING [Suspect]
     Active Substance: ETHINYL ESTRADIOL\ETONOGESTREL
     Indication: CONTRACEPTION
     Dosage: RING, 3 WEEKS IN, 1 WEEK OUT
     Route: 067
  2. NUVARING [Suspect]
     Active Substance: ETHINYL ESTRADIOL\ETONOGESTREL
     Dosage: RING, 3 WEEKS IN, 1 WEEK OUT
     Route: 067
     Dates: start: 20170209

REACTIONS (8)
  - Back pain [Recovered/Resolved]
  - Joint stiffness [Unknown]
  - Back pain [Unknown]
  - Musculoskeletal chest pain [Recovered/Resolved]
  - Musculoskeletal chest pain [Unknown]
  - Arthralgia [Recovered/Resolved]
  - Joint stiffness [Recovered/Resolved]
  - Arthralgia [Unknown]
